FAERS Safety Report 17977379 (Version 3)
Quarter: 2020Q3

REPORT INFORMATION
  Report Type: Report from Study
  Country: DE (occurrence: DE)
  Receive Date: 20200703
  Receipt Date: 20200803
  Transmission Date: 20201103
  Serious: Yes (Hospitalization)
  Sender: FDA-Public Use
  Company Number: NVSC2020DE184348

PATIENT
  Age: 65 Year
  Sex: Male

DRUGS (2)
  1. TRAMETINIB [Suspect]
     Active Substance: TRAMETINIB
     Indication: MALIGNANT MELANOMA STAGE III
     Dosage: 2 MG
     Route: 065
     Dates: start: 20200528, end: 20200624
  2. DABRAFENIB [Suspect]
     Active Substance: DABRAFENIB
     Indication: MALIGNANT MELANOMA STAGE III
     Dosage: 300 MG
     Route: 065
     Dates: start: 20200528, end: 20200624

REACTIONS (6)
  - Atrial fibrillation [Unknown]
  - Toxic cardiomyopathy [Unknown]
  - Atrial flutter [Unknown]
  - Ejection fraction decreased [Unknown]
  - Tachycardia [Unknown]
  - Electrocardiogram abnormal [Recovered/Resolved]

NARRATIVE: CASE EVENT DATE: 20200624
